FAERS Safety Report 10202844 (Version 1)
Quarter: 2014Q2

REPORT INFORMATION
  Report Type: Spontaneous
  Country: US (occurrence: US)
  Receive Date: 20140522
  Receipt Date: 20140522
  Transmission Date: 20141212
  Serious: No
  Sender: FDA-Public Use
  Company Number: US-SA-2014SA038519

PATIENT
  Age: 80 Year
  Sex: Female

DRUGS (8)
  1. SOLOSTAR [Suspect]
     Indication: DEVICE THERAPY
     Dates: start: 20140208, end: 20140406
  2. LANTUS SOLOSTAR [Suspect]
     Indication: TYPE 2 DIABETES MELLITUS
     Dosage: DOSE:27 UNIT(S)
     Route: 058
     Dates: start: 20140208, end: 20140406
  3. FOSINOPRIL [Concomitant]
     Indication: BLOOD PRESSURE
  4. FUROSEMIDE [Concomitant]
  5. LEVOTHYROXINE [Concomitant]
     Indication: THYROID DISORDER
  6. GLUCOVANCE [Concomitant]
     Indication: TYPE 2 DIABETES MELLITUS
     Dosage: DOSE: 5/500 X 4
  7. ATENOL [Concomitant]
  8. SIMVASTATIN [Concomitant]
     Indication: BLOOD CHOLESTEROL
     Dosage: FREQUENCY: 2-3/WEEK

REACTIONS (3)
  - Essential tremor [Unknown]
  - Needle issue [Unknown]
  - Blood glucose increased [Not Recovered/Not Resolved]
